FAERS Safety Report 12059127 (Version 3)
Quarter: 2016Q1

REPORT INFORMATION
  Report Type: Spontaneous
  Country: IT (occurrence: IT)
  Receive Date: 20160210
  Receipt Date: 20160328
  Transmission Date: 20160526
  Serious: Yes (Other)
  Sender: FDA-Public Use
  Company Number: IT-ROCHE-1708796

PATIENT
  Age: 50 Year
  Sex: Male
  Weight: 89 kg

DRUGS (2)
  1. COPEGUS [Suspect]
     Active Substance: RIBAVIRIN
     Indication: HEPATIC CIRRHOSIS
     Dosage: 28 TABLETS IN A BOTTLE
     Route: 048
     Dates: start: 20160128, end: 20160202
  2. HARVONI [Suspect]
     Active Substance: LEDIPASVIR\SOFOSBUVIR
     Indication: HEPATIC CIRRHOSIS
     Dosage: FORM STRENGTH; 90 MG/ 400 MG,?BOTTLE: HIGH DENSITY POLYETHYLENE [HDPE], 28 TABLETS
     Route: 048
     Dates: start: 20160128, end: 20160202

REACTIONS (2)
  - Eczema asteatotic [Recovered/Resolved]
  - Rash papular [Recovered/Resolved]

NARRATIVE: CASE EVENT DATE: 20160131
